FAERS Safety Report 7322138-1 (Version None)
Quarter: 2011Q1

REPORT INFORMATION
  Report Type: 
  Country: None (occurrence: None)
  Receive Date: 20110228
  Receipt Date: 20110115
  Transmission Date: 20110831
  Serious: Yes (Other)
  Sender: FDA-Public Use
  Company Number: US-BAXTER-2010BH007897

PATIENT
  Age: 78 Year
  Sex: Male

DRUGS (24)
  1. HEPARIN SODIUM INJECTION [Suspect]
     Indication: MITRAL VALVE REPAIR
     Route: 041
     Dates: start: 20080214, end: 20080214
  2. HEPARIN SODIUM INJECTION [Suspect]
     Route: 065
     Dates: start: 20080101
  3. HEPARIN SODIUM INJECTION [Suspect]
     Route: 065
     Dates: start: 20080214, end: 20080219
  4. HEPARIN SODIUM INJECTION [Suspect]
     Route: 065
     Dates: start: 20080201
  5. HEPARIN SODIUM INJECTION [Suspect]
     Route: 065
     Dates: start: 20080201
  6. LEVOXYL [Concomitant]
     Indication: PRODUCT USED FOR UNKNOWN INDICATION
     Route: 065
  7. TIMOLOL [Concomitant]
     Indication: PRODUCT USED FOR UNKNOWN INDICATION
     Route: 065
  8. HEPARIN SODIUM INJECTION [Suspect]
     Route: 065
     Dates: start: 20080214, end: 20080219
  9. HEPARIN SODIUM INJECTION [Suspect]
     Route: 065
     Dates: start: 20080201
  10. ENALAPRIL [Concomitant]
     Indication: PRODUCT USED FOR UNKNOWN INDICATION
     Route: 065
  11. XALATAN [Concomitant]
     Indication: PRODUCT USED FOR UNKNOWN INDICATION
     Route: 065
  12. HEPARIN SODIUM INJECTION [Suspect]
     Indication: CORONARY ARTERY BYPASS
     Route: 041
     Dates: start: 20080214, end: 20080214
  13. ALPHAGAN [Concomitant]
     Indication: PRODUCT USED FOR UNKNOWN INDICATION
     Route: 065
  14. HEPARIN SODIUM INJECTION [Suspect]
     Route: 065
     Dates: start: 20080101
  15. HEPARIN SODIUM INJECTION [Suspect]
     Route: 065
     Dates: start: 20080101
  16. ASA [Concomitant]
     Indication: PRODUCT USED FOR UNKNOWN INDICATION
     Route: 065
  17. HEPARIN SODIUM INJECTION [Suspect]
     Indication: CARDIAC ANEURYSM
     Route: 041
     Dates: start: 20080214, end: 20080214
  18. HEPARIN SODIUM INJECTION [Suspect]
     Route: 065
     Dates: start: 20080214, end: 20080219
  19. TOPROL-XL [Concomitant]
     Indication: PRODUCT USED FOR UNKNOWN INDICATION
     Route: 065
  20. HEPARIN SODIUM INJECTION [Suspect]
     Route: 065
     Dates: start: 20080101
  21. HEPARIN SODIUM INJECTION [Suspect]
     Route: 065
     Dates: start: 20080201
  22. HEPARIN SODIUM INJECTION [Suspect]
     Indication: CATHETERISATION CARDIAC
     Route: 041
     Dates: start: 20080214, end: 20080214
  23. HEPARIN SODIUM INJECTION [Suspect]
     Route: 065
     Dates: start: 20080214, end: 20080219
  24. LIPITOR [Concomitant]
     Indication: PRODUCT USED FOR UNKNOWN INDICATION
     Route: 065

REACTIONS (8)
  - GANGRENE [None]
  - DEEP VEIN THROMBOSIS [None]
  - THROMBOSIS [None]
  - INFECTION [None]
  - ATRIAL FIBRILLATION [None]
  - OEDEMA [None]
  - HEPARIN-INDUCED THROMBOCYTOPENIA [None]
  - BLISTER [None]
